FAERS Safety Report 5203960-4 (Version None)
Quarter: 2007Q1

REPORT INFORMATION
  Report Type: 
  Country: None (occurrence: None)
  Receive Date: 20070105
  Receipt Date: 20070105
  Transmission Date: 20070707
  Serious: Yes (Hospitalization)
  Sender: FDA-Public Use
  Company Number: None

PATIENT
  Age: 54 Year
  Sex: Male
  Weight: 169.5 kg

DRUGS (3)
  1. CAPECITABINE [Suspect]
     Indication: NEOPLASM MALIGNANT
     Dosage: 1150MG BID DAY 1-38
  2. OXALIPLATIN [Suspect]
     Dosage: 97 MG IV TO RUN OVER 2 HOURS
     Route: 042
     Dates: start: 20061219
  3. OXALIPLATIN [Suspect]
     Dosage: 97 MG IV TO RUN OVER 2 HOURS
     Route: 042
     Dates: start: 20061227

REACTIONS (9)
  - ABDOMINAL PAIN UPPER [None]
  - CONSTIPATION [None]
  - DEHYDRATION [None]
  - HAEMATOCRIT DECREASED [None]
  - MALNUTRITION [None]
  - NAUSEA [None]
  - PERFORMANCE STATUS DECREASED [None]
  - PROCEDURAL PAIN [None]
  - PYREXIA [None]
